FAERS Safety Report 5520707-2 (Version None)
Quarter: 2007Q4

REPORT INFORMATION
  Report Type: 
  Country: None (occurrence: None)
  Receive Date: 20071115
  Receipt Date: 20071115
  Transmission Date: 20080405
  Serious: Yes (Hospitalization)
  Sender: FDA-Public Use
  Company Number: None

PATIENT
  Age: 60 Year
  Sex: Male

DRUGS (1)
  1. IODIXANOL [Suspect]
     Indication: CORONARY ARTERIAL STENT INSERTION
     Dates: start: 20071016, end: 20071016

REACTIONS (4)
  - MUSCLE SPASMS [None]
  - PRURITUS [None]
  - RASH [None]
  - THROAT IRRITATION [None]
